FAERS Safety Report 6311432-9 (Version None)
Quarter: 2009Q3

REPORT INFORMATION
  Report Type: 
  Country: None (occurrence: None)
  Receive Date: 20090817
  Receipt Date: 20090809
  Transmission Date: 20100115
  Serious: Yes (Other)
  Sender: FDA-Public Use
  Company Number: US-PFIZER INC-2009232846

PATIENT

DRUGS (1)
  1. DEPO-PROVERA [Suspect]

REACTIONS (3)
  - DYSURIA [None]
  - HAEMATURIA [None]
  - THROMBOSIS [None]
